FAERS Safety Report 5305375-7 (Version None)
Quarter: 2007Q2

REPORT INFORMATION
  Report Type: 
  Country: None (occurrence: None)
  Receive Date: 20070424
  Receipt Date: 20070416
  Transmission Date: 20071010
  Serious: Yes (Death)
  Sender: FDA-Public Use
  Company Number: US-AVENTIS-200712117US

PATIENT

DRUGS (1)
  1. TAXOTERE [Suspect]
     Dosage: DOSE: UNKNOWN

REACTIONS (1)
  - DISEASE PROGRESSION [None]
